FAERS Safety Report 7308342-7 (Version None)
Quarter: 2011Q1

REPORT INFORMATION
  Report Type: 
  Country: None (occurrence: None)
  Receive Date: 20110223
  Receipt Date: 20110217
  Transmission Date: 20110831
  Serious: Yes (Hospitalization)
  Sender: FDA-Public Use
  Company Number: B0699899A

PATIENT
  Age: 81 Year
  Sex: Male

DRUGS (2)
  1. ARASENA-A [Concomitant]
  2. VALTREX [Suspect]
     Indication: HERPES ZOSTER
     Dosage: 6IUAX PER DAY
     Route: 048
     Dates: start: 20110207, end: 20110210

REACTIONS (3)
  - DYSLALIA [None]
  - GAIT DISTURBANCE [None]
  - ENCEPHALOPATHY [None]
